FAERS Safety Report 10885793 (Version 1)
Quarter: 2015Q1

REPORT INFORMATION
  Report Type: Spontaneous
  Country: US (occurrence: None)
  Receive Date: 20150302
  Receipt Date: 20150302
  Transmission Date: 20150721
  Serious: Yes (Other)
  Sender: FDA-Public Use
  Company Number: US-H14001-15-00261

PATIENT
  Age: 64 Year
  Sex: Female

DRUGS (3)
  1. ONDANSETRON [Suspect]
     Active Substance: ONDANSETRON
     Indication: NAUSEA
     Route: 042
  2. MICAFUNGIN [Concomitant]
     Active Substance: MICAFUNGIN
  3. FLUCONAZOLE. [Suspect]
     Active Substance: FLUCONAZOLE
     Indication: CHOROIDITIS

REACTIONS (3)
  - Torsade de pointes [None]
  - Cardiac arrest [None]
  - Nausea [None]
